FAERS Safety Report 14601079 (Version 2)
Quarter: 2018Q3

REPORT INFORMATION
  Report Type: Report from Study
  Country: US (occurrence: US)
  Receive Date: 20180305
  Receipt Date: 20180910
  Transmission Date: 20181010
  Serious: Yes (Hospitalization)
  Sender: FDA-Public Use
  Company Number: US-ACTELION-A-NJ2018-168456

PATIENT
  Age: 68 Year
  Sex: Male
  Weight: 74.83 kg

DRUGS (27)
  1. ASPIRIN 81 [Concomitant]
     Active Substance: ASPIRIN
     Dosage: 81 MG, UNK
  2. ALBUTEROL. [Concomitant]
     Active Substance: ALBUTEROL
  3. BUDESONIDE. [Concomitant]
     Active Substance: BUDESONIDE
     Dosage: 2 PUFF, BID
  4. DUONEB [Concomitant]
     Active Substance: ALBUTEROL SULFATE\IPRATROPIUM BROMIDE
     Dosage: UNK, Q6HRS
  5. FUROSEMIDE. [Concomitant]
     Active Substance: FUROSEMIDE
     Dosage: 20 MG, UNK
  6. POTASSIUM CHLORIDE. [Concomitant]
     Active Substance: POTASSIUM CHLORIDE
     Dosage: 20 MEQ, UNK
  7. BUSPIRONE [Concomitant]
     Active Substance: BUSPIRONE HYDROCHLORIDE
     Dosage: 15 MG, BID
  8. VITAMIN D3 [Concomitant]
     Active Substance: CHOLECALCIFEROL
  9. MUCINEX [Concomitant]
     Active Substance: GUAIFENESIN
     Dosage: 1200 MG, BID
  10. CYCLOBENZAPRINE. [Concomitant]
     Active Substance: CYCLOBENZAPRINE
     Dosage: 5 MG, UNK
  11. NEBIVOLOL. [Concomitant]
     Active Substance: NEBIVOLOL
     Indication: HYPERTENSION
     Dosage: 5 MG, UNK
  12. RANITIDINE. [Concomitant]
     Active Substance: RANITIDINE
     Dosage: 300 MG, UNK
  13. LEXAPRO [Concomitant]
     Active Substance: ESCITALOPRAM OXALATE
     Dosage: 20 MG, UNK
  14. BENZONATATE. [Concomitant]
     Active Substance: BENZONATATE
     Dosage: 100 MG, TID
  15. SODIUM CHLORIDE. [Concomitant]
     Active Substance: SODIUM CHLORIDE
     Dosage: UNK, Q4HRS
  16. PREDNISONE. [Concomitant]
     Active Substance: PREDNISONE
     Dosage: 20 MG, UNK
  17. ATORVASTATIN [Concomitant]
     Active Substance: ATORVASTATIN
     Dosage: 20 MG, UNK
  18. CALCIUM CITRATE + D [Concomitant]
  19. UPTRAVI [Suspect]
     Active Substance: SELEXIPAG
     Indication: PULMONARY HYPERTENSION
     Dosage: 1600 MCG, BID
     Route: 048
     Dates: start: 20170106
  20. SILDENAFIL. [Concomitant]
     Active Substance: SILDENAFIL
     Dosage: 20 MG, TID
  21. ANCEF [Concomitant]
     Active Substance: CEFAZOLIN SODIUM
     Dosage: 2 G, Q8HRS
     Route: 042
     Dates: start: 201802
  22. TIZANIDINE. [Concomitant]
     Active Substance: TIZANIDINE
     Dosage: 2 MG, TID
  23. LORAZEPAM. [Concomitant]
     Active Substance: LORAZEPAM
     Indication: ANXIETY
     Dosage: 0.5 MG, BID
  24. CELLCEPT [Concomitant]
     Active Substance: MYCOPHENOLATE MOFETIL\MYCOPHENOLATE MOFETIL HYDROCHLORIDE
  25. ESBRIET [Concomitant]
     Active Substance: PIRFENIDONE
  26. MAGNESIUM OXIDE. [Concomitant]
     Active Substance: MAGNESIUM OXIDE
     Dosage: 400 MG, UNK
  27. PROTONIX [Concomitant]
     Active Substance: PANTOPRAZOLE SODIUM
     Indication: GASTROOESOPHAGEAL REFLUX DISEASE
     Dosage: 40 MG, BID

REACTIONS (32)
  - Staphylococcal infection [Unknown]
  - Staphylococcus test positive [Unknown]
  - Mixed connective tissue disease [Recovering/Resolving]
  - Inflammation [Recovering/Resolving]
  - Haemorrhage [Unknown]
  - Transfusion [Unknown]
  - Hypoxia [Recovered/Resolved]
  - Sepsis [Unknown]
  - Normocytic anaemia [Recovering/Resolving]
  - Diarrhoea [Recovered/Resolved]
  - Stenotrophomonas infection [Unknown]
  - Productive cough [Recovered/Resolved]
  - Dyspnoea exertional [Recovered/Resolved]
  - Hypertension [Unknown]
  - Anxiety [Unknown]
  - Pneumonia staphylococcal [Unknown]
  - Epistaxis [Recovered/Resolved]
  - Immunodeficiency [Recovering/Resolving]
  - Chronic obstructive pulmonary disease [Recovering/Resolving]
  - Mycetoma mycotic [Unknown]
  - Influenza [Unknown]
  - Staphylococcal bacteraemia [Recovering/Resolving]
  - Oral candidiasis [Recovered/Resolved]
  - Interstitial lung disease [Recovering/Resolving]
  - Oesophagitis [Unknown]
  - Gastrooesophageal reflux disease [Recovering/Resolving]
  - Dyspnoea [Recovered/Resolved]
  - Acute respiratory failure [Recovered/Resolved]
  - Pulmonary arterial hypertension [Unknown]
  - Streptococcal infection [Unknown]
  - Thrombocytosis [Unknown]
  - Haemoglobin decreased [Recovered/Resolved]

NARRATIVE: CASE EVENT DATE: 201801
